FAERS Safety Report 7250797-0 (Version None)
Quarter: 2011Q1

REPORT INFORMATION
  Report Type: 
  Country: None (occurrence: None)
  Receive Date: 20110128
  Receipt Date: 20110121
  Transmission Date: 20110831
  Serious: Yes (Hospitalization)
  Sender: FDA-Public Use
  Company Number: IT-BRISTOL-MYERS SQUIBB COMPANY-15499783

PATIENT
  Age: 28 Year
  Sex: Male

DRUGS (2)
  1. ENTECAVIR [Suspect]
     Indication: ANTIRETROVIRAL THERAPY
     Route: 048
  2. INTERFERON ALFA-2A [Suspect]
     Route: 058

REACTIONS (3)
  - DIABETES MELLITUS [None]
  - PANCREATITIS ACUTE [None]
  - HYPERTRIGLYCERIDAEMIA [None]
